FAERS Safety Report 8915313 (Version 1)
Quarter: 2012Q4

REPORT INFORMATION
  Report Type: 
  Country: US (occurrence: US)
  Receive Date: 20121116
  Receipt Date: 20121116
  Transmission Date: 20130627
  Serious: Yes (Other)
  Sender: FDA-Public Use
  Company Number: US-TEVA-370322USA

PATIENT
  Age: 19 Year

DRUGS (2)
  1. GEMCITABINE [Suspect]
     Indication: RHABDOMYOSARCOMA
     Dosage: 675 mg/m2 d1+8 q3w
     Route: 041
  2. DOCETAXEL [Suspect]
     Indication: RHABDOMYOSARCOMA
     Dosage: 75 mg/m2 d8 q3w
     Route: 041

REACTIONS (2)
  - Blood creatinine increased [Unknown]
  - Hypercalcaemia [Unknown]
